FAERS Safety Report 6401493-0 (Version None)
Quarter: 2009Q4

REPORT INFORMATION
  Report Type: 
  Country: None (occurrence: None)
  Receive Date: 20091015
  Receipt Date: 20091008
  Transmission Date: 20100525
  Serious: Yes (Hospitalization)
  Sender: FDA-Public Use
  Company Number: US-JNJFOC-20090701259

PATIENT
  Sex: Female
  Weight: 75.6 kg

DRUGS (21)
  1. GOLIMUMAB [Suspect]
     Route: 058
     Dates: start: 20081203
  2. GOLIMUMAB [Suspect]
     Indication: RHEUMATOID ARTHRITIS
     Route: 058
     Dates: start: 20081203
  3. GOLIMUMAB [Suspect]
     Route: 042
  4. GOLIMUMAB [Suspect]
     Route: 042
  5. METHOTREXATE [Suspect]
     Route: 048
  6. METHOTREXATE [Suspect]
     Indication: RHEUMATOID ARTHRITIS
     Route: 048
  7. PLACEBO [Suspect]
     Indication: RHEUMATOID ARTHRITIS
     Route: 048
  8. AMILORIDE HCL AND HYDROCHLOROTHIAZIDE [Concomitant]
     Route: 048
  9. AVELOX [Concomitant]
     Indication: PROPHYLAXIS
     Route: 048
  10. CIPROFLOXACIN HYDROCHLORIDE [Concomitant]
     Route: 048
  11. EVISTA [Concomitant]
     Route: 048
  12. FLU VACCINE [Concomitant]
     Indication: PROPHYLAXIS
     Route: 030
  13. FOLIC ACID [Concomitant]
     Route: 048
  14. IRON [Concomitant]
     Route: 048
  15. LEXAPRO [Concomitant]
     Route: 048
  16. METHOTREXATE [Concomitant]
     Route: 048
  17. METHYLPREDNISOLONE [Concomitant]
     Indication: RHEUMATOID ARTHRITIS
     Route: 048
  18. NEOSPORIN [Concomitant]
     Route: 061
  19. OXYCODONE [Concomitant]
     Indication: RHEUMATOID ARTHRITIS
     Route: 048
  20. PROTONIX [Concomitant]
     Route: 048
  21. POTASSIUM CHLORIDE [Concomitant]

REACTIONS (2)
  - HYPONATRAEMIA [None]
  - PNEUMONIA [None]
